FAERS Safety Report 23998544 (Version 1)
Quarter: 2024Q2

REPORT INFORMATION
  Report Type: Spontaneous
  Country: US (occurrence: US)
  Receive Date: 20240621
  Receipt Date: 20240621
  Transmission Date: 20240716
  Serious: Yes (Other)
  Sender: FDA-Public Use
  Company Number: US-KOANAAP-SML-US-2024-00559

PATIENT
  Age: 38 Year
  Sex: Female

DRUGS (29)
  1. CAPECITABINE [Suspect]
     Active Substance: CAPECITABINE
     Indication: Hormone receptor positive breast cancer
  2. CAPECITABINE [Suspect]
     Active Substance: CAPECITABINE
     Indication: Hormone receptor positive breast cancer
  3. CAPECITABINE [Suspect]
     Active Substance: CAPECITABINE
     Indication: Human epidermal growth factor receptor negative
  4. DOCETAXEL [Suspect]
     Active Substance: DOCETAXEL\DOCETAXEL ANHYDROUS
     Indication: Hormone receptor positive breast cancer
  5. DOCETAXEL [Suspect]
     Active Substance: DOCETAXEL\DOCETAXEL ANHYDROUS
     Indication: Hormone receptor positive breast cancer
  6. DOCETAXEL [Suspect]
     Active Substance: DOCETAXEL\DOCETAXEL ANHYDROUS
     Indication: Human epidermal growth factor receptor negative
  7. GEMCITABINE [Suspect]
     Active Substance: GEMCITABINE
     Indication: Product used for unknown indication
  8. TAMOXIFEN [Suspect]
     Active Substance: TAMOXIFEN
     Indication: Hormone receptor positive breast cancer
  9. TAMOXIFEN [Suspect]
     Active Substance: TAMOXIFEN
     Indication: Hormone receptor positive breast cancer
  10. TAMOXIFEN [Suspect]
     Active Substance: TAMOXIFEN
     Indication: Human epidermal growth factor receptor negative
  11. TRASTUZUMAB [Suspect]
     Active Substance: TRASTUZUMAB
     Indication: Hormone receptor positive breast cancer
  12. TRASTUZUMAB [Suspect]
     Active Substance: TRASTUZUMAB
     Indication: Hormone receptor positive breast cancer
  13. TRASTUZUMAB [Suspect]
     Active Substance: TRASTUZUMAB
     Indication: Human epidermal growth factor receptor negative
  14. ADO-TRASTUZUMAB EMTANSINE [Suspect]
     Active Substance: ADO-TRASTUZUMAB EMTANSINE
     Indication: Hormone receptor positive breast cancer
  15. ADO-TRASTUZUMAB EMTANSINE [Suspect]
     Active Substance: ADO-TRASTUZUMAB EMTANSINE
     Indication: Hormone receptor positive breast cancer
  16. ADO-TRASTUZUMAB EMTANSINE [Suspect]
     Active Substance: ADO-TRASTUZUMAB EMTANSINE
     Indication: Human epidermal growth factor receptor negative
  17. LAPATINIB [Suspect]
     Active Substance: LAPATINIB
     Indication: Hormone receptor positive breast cancer
  18. LAPATINIB [Suspect]
     Active Substance: LAPATINIB
     Indication: Hormone receptor positive breast cancer
  19. LAPATINIB [Suspect]
     Active Substance: LAPATINIB
     Indication: Human epidermal growth factor receptor negative
  20. GOSERELIN [Suspect]
     Active Substance: GOSERELIN
     Indication: Hormone receptor positive breast cancer
  21. GOSERELIN [Suspect]
     Active Substance: GOSERELIN
     Indication: Hormone receptor positive breast cancer
  22. GOSERELIN [Suspect]
     Active Substance: GOSERELIN
     Indication: Human epidermal growth factor receptor negative
  23. ANASTROZOLE [Suspect]
     Active Substance: ANASTROZOLE
     Indication: Hormone receptor positive breast cancer
  24. ANASTROZOLE [Suspect]
     Active Substance: ANASTROZOLE
     Indication: Hormone receptor positive breast cancer
  25. ANASTROZOLE [Suspect]
     Active Substance: ANASTROZOLE
     Indication: Human epidermal growth factor receptor negative
  26. NERATINIB [Suspect]
     Active Substance: NERATINIB
     Indication: Hormone receptor positive breast cancer
  27. NERATINIB [Suspect]
     Active Substance: NERATINIB
     Indication: Hormone receptor positive breast cancer
  28. NERATINIB [Suspect]
     Active Substance: NERATINIB
     Indication: Human epidermal growth factor receptor negative
  29. ZOLEDRONIC ACID [Suspect]
     Active Substance: ZOLEDRONIC ACID
     Indication: Product used for unknown indication

REACTIONS (3)
  - Palmar-plantar erythrodysaesthesia syndrome [Recovering/Resolving]
  - Drug ineffective [Unknown]
  - Disease progression [Unknown]
